FAERS Safety Report 5245733-2 (Version None)
Quarter: 2007Q1

REPORT INFORMATION
  Report Type: 
  Country: None (occurrence: None)
  Receive Date: 20070223
  Receipt Date: 20070216
  Transmission Date: 20070707
  Serious: Yes (Hospitalization, Other)
  Sender: FDA-Public Use
  Company Number: NO-MERCK-0602NOR00012

PATIENT
  Age: 32 Year
  Sex: Female

DRUGS (6)
  1. SINGULAIR [Suspect]
     Indication: ASTHMA
     Route: 048
     Dates: end: 20060131
  2. DESLORATADINE [Concomitant]
     Indication: HYPERSENSITIVITY
     Route: 065
  3. FLUTICASONE PROPIONATE [Concomitant]
     Route: 065
  4. LEVOCETIRIZINE HYDROCHLORIDE [Concomitant]
     Route: 065
  5. TERBUTALINE SULFATE [Concomitant]
     Route: 065
  6. BUDESONIDE AND FORMOTEROL FUMARATE [Concomitant]
     Route: 065

REACTIONS (4)
  - BLOOD GLUCOSE INCREASED [None]
  - DEAFNESS [None]
  - DRUG EXPOSURE DURING PREGNANCY [None]
  - PNEUMONIA [None]
